FAERS Safety Report 8625338-3 (Version None)
Quarter: 2012Q3

REPORT INFORMATION
  Report Type: 
  Country: None (occurrence: None)
  Receive Date: 20120827
  Receipt Date: 20070626
  Transmission Date: 20120928
  Serious: Yes (Other)
  Sender: FDA-Public Use
  Company Number: CO-PFIZER INC-2012207002

PATIENT
  Age: 65 Year
  Sex: Female

DRUGS (4)
  1. OLMESARTAN MEDOXOMIL AND HYDROCHLOROTHIZIDE [Suspect]
     Indication: HYPERTENSION
     Dosage: [OLMESARTAN MEDOXOMIL 20 MG]/ [HYDROCHLOROTHIAZIDE 12.5MG] ONCE DAILY
  2. METFORMIN [Concomitant]
     Dosage: 850 MG, ONCE DAILY
  3. NORVASC [Suspect]
     Indication: HYPERTENSION
     Dosage: 10 MG, ONCE DAILY
  4. GLIBENCLAMIDE [Concomitant]
     Dosage: 5 MG, ONCE DAILY

REACTIONS (2)
  - HYPERTENSIVE EMERGENCY [None]
  - COUGH [None]
